FAERS Safety Report 10584520 (Version 1)
Quarter: 2014Q4

REPORT INFORMATION
  Report Type: Spontaneous
  Country: JP (occurrence: JP)
  Receive Date: 20141114
  Receipt Date: 20141114
  Transmission Date: 20150529
  Serious: Yes (Hospitalization, Other)
  Sender: FDA-Public Use
  Company Number: JP-WATSON-2014-24195

PATIENT
  Age: 28 Year
  Sex: Male

DRUGS (1)
  1. CABERGOLINE (UNKNOWN) [Suspect]
     Active Substance: CABERGOLINE
     Indication: PROLACTINOMA
     Dosage: 0.25 MG, 1/WEEK
     Route: 065

REACTIONS (2)
  - Cerebrospinal fluid leakage [Recovered/Resolved]
  - Pneumocephalus [Unknown]
